FAERS Safety Report 5408275-7 (Version None)
Quarter: 2007Q3

REPORT INFORMATION
  Report Type: 
  Country: None (occurrence: None)
  Receive Date: 20070806
  Receipt Date: 20070716
  Transmission Date: 20080115
  Serious: Yes (Life-Threatening)
  Sender: FDA-Public Use
  Company Number: 17138

PATIENT
  Age: 65 Year
  Sex: Male
  Weight: 95 kg

DRUGS (13)
  1. CYTARABINE [Suspect]
     Indication: ACUTE MYELOID LEUKAEMIA
     Dosage: 200 MG/M2
     Dates: start: 20070326, end: 20070517
  2. KEPPRA [Suspect]
     Indication: EPILEPSY
     Dosage: 1 DF BID
     Dates: start: 20070321, end: 20070617
  3. AVASTIN [Suspect]
     Indication: ACUTE MYELOID LEUKAEMIA
     Dosage: 5 MG/KG FREQ
     Dates: start: 20070326, end: 20070526
  4. FRISIUM. MFR: NOT SPECIFIED [Concomitant]
  5. FUNGIZONE. MFR: NOT SPECIFIED [Concomitant]
  6. METOPROLOL SUCCINAAT [Concomitant]
  7. KONAKION MM. MFR: NOT SPECIFIED [Concomitant]
  8. HALDOL /00027401/. MFR: NOT SPECIFIED [Concomitant]
  9. FLUCONAZOL. MFR: NOT SPECIFIED [Concomitant]
  10. LANOXIN. MFR: NOT SPECIFIED [Concomitant]
  11. THIAMINE /00056102/ [Concomitant]
  12. CIPROFLOXACIN HCL [Concomitant]
  13. MERONEM /01250501/. MFR: NOT SPECIFIED [Concomitant]

REACTIONS (1)
  - ENCEPHALOPATHY [None]
